FAERS Safety Report 19897698 (Version 1)
Quarter: 2021Q3

REPORT INFORMATION
  Report Type: Spontaneous
  Country: RU (occurrence: RU)
  Receive Date: 20210930
  Receipt Date: 20210930
  Transmission Date: 20211014
  Serious: Yes (Other)
  Sender: FDA-Public Use
  Company Number: RU-SA-2021SA316307

PATIENT
  Age: 37 Year
  Sex: Male

DRUGS (4)
  1. RINGLAR [Concomitant]
     Active Substance: INSULIN GLARGINE
     Indication: TYPE 1 DIABETES MELLITUS
     Dosage: 40 IU, QD(IN THE EVENING)
     Route: 058
     Dates: start: 20210201
  2. NOVORAPID [Suspect]
     Active Substance: INSULIN ASPART
     Indication: TYPE 1 DIABETES MELLITUS
     Dosage: 20 IU, TID(9 H ? 20 IU, 14 H ? 20 IU, 18 H ? 20 IU)
     Route: 058
     Dates: start: 20200116, end: 20200216
  3. FIASP [Concomitant]
     Active Substance: INSULIN ASPART
     Indication: TYPE 1 DIABETES MELLITUS
     Dosage: 20 IU, TID(9 H ? 20 IU, 14 H ? 20 IU, 18 H ? 20 IU)
     Route: 058
     Dates: start: 2020
  4. TOUJEO [Suspect]
     Active Substance: INSULIN GLARGINE
     Indication: TYPE 1 DIABETES MELLITUS
     Dosage: 40 IU, QD(IN THE EVENING)
     Route: 058
     Dates: start: 20200116, end: 20200216

REACTIONS (2)
  - Blood glucose fluctuation [Recovering/Resolving]
  - Burning sensation [Recovering/Resolving]
